FAERS Safety Report 5579010-7 (Version None)
Quarter: 2007Q4

REPORT INFORMATION
  Report Type: 
  Country: None (occurrence: None)
  Receive Date: 20071228
  Receipt Date: 20071203
  Transmission Date: 20080405
  Serious: No
  Sender: FDA-Public Use
  Company Number: ZYD-AE-07-106

PATIENT
  Age: 57 Year
  Sex: Female

DRUGS (2)
  1. PAROXETINE [Suspect]
     Indication: DEPRESSION
     Dosage: 20MG - DAILY - PO
     Route: 048
     Dates: start: 20070929, end: 20071101
  2. PROCAINE HCL [Suspect]
     Indication: LOCAL ANAESTHESIA
     Dosage: INJECTION
     Dates: start: 20071101, end: 20071101

REACTIONS (3)
  - DEVICE BREAKAGE [None]
  - EPILEPSY [None]
  - FEELING ABNORMAL [None]
